FAERS Safety Report 24134889 (Version 2)
Quarter: 2024Q3

REPORT INFORMATION
  Report Type: Spontaneous
  Country: CZ (occurrence: CZ)
  Receive Date: 20240725
  Receipt Date: 20240828
  Transmission Date: 20241017
  Serious: No
  Sender: SANOFI AVENTIS
  Company Number: CZ-SA-SAC20240722000472

PATIENT
  Sex: Female

DRUGS (4)
  1. AVALGLUCOSIDASE ALFA [Suspect]
     Active Substance: AVALGLUCOSIDASE ALFA
     Indication: Glycogen storage disease type II
     Dosage: 20 MG/KG, QOW
     Route: 065
  2. AVALGLUCOSIDASE ALFA [Suspect]
     Active Substance: AVALGLUCOSIDASE ALFA
     Dosage: 20 MG/KG, QOW
     Route: 065
     Dates: start: 20240703
  3. CALCIUM\VITAMIN D [Concomitant]
     Active Substance: CALCIUM\VITAMIN D
     Dosage: 1-0-0
  4. FOLIC ACID [Concomitant]
     Active Substance: FOLIC ACID
     Dosage: MG/800IU

REACTIONS (1)
  - No adverse event [Unknown]
